FAERS Safety Report 4891969-X (Version None)
Quarter: 2006Q1

REPORT INFORMATION
  Report Type: 
  Country: None (occurrence: None)
  Receive Date: 20060126
  Receipt Date: 20060118
  Transmission Date: 20060701
  Serious: Yes (Hospitalization)
  Sender: FDA-Public Use
  Company Number: DE-RB-2656-2006

PATIENT
  Age: 87 Year
  Sex: Female

DRUGS (4)
  1. BUPRENORPHINE HCL [Suspect]
     Indication: DRUG USE FOR UNKNOWN INDICATION
     Dosage: 1 IN 1 HOUR
     Route: 062
  2. ESOMEPRAZOLE [Concomitant]
     Dosage: DOSE UNKNOWN
     Route: 065
  3. DIPYRONE TAB [Concomitant]
     Dosage: DOSE UNKNOWN
     Route: 065
  4. LACTULOSE [Concomitant]
     Dosage: DOSE UNKNOWN
     Route: 065

REACTIONS (3)
  - DIET REFUSAL [None]
  - HOSPITALISATION [None]
  - VOMITING [None]
